FAERS Safety Report 5165183-7 (Version None)
Quarter: 2006Q4

REPORT INFORMATION
  Report Type: 
  Country: None (occurrence: None)
  Receive Date: 20061127
  Receipt Date: 20061117
  Transmission Date: 20070319
  Serious: Yes (Other)
  Sender: FDA-Public Use
  Company Number: 2006SP005446

PATIENT
  Age: 27 Year
  Sex: Male
  Weight: 60 kg

DRUGS (9)
  1. NOXAFIL [Suspect]
     Indication: BRONCHOPULMONARY ASPERGILLOSIS
     Dosage: 400 MG BID PO
     Route: 048
     Dates: start: 20060818, end: 20060912
  2. TIENAM [Concomitant]
  3. OFLOCET [Concomitant]
  4. ZOVIRAX [Concomitant]
  5. VANOMYCINE [Concomitant]
  6. SOMUMEDROL [Concomitant]
  7. AMBISOME [Concomitant]
  8. SPASFON [Concomitant]
  9. ACTRAPID [Concomitant]

REACTIONS (5)
  - BLOOD BILIRUBIN INCREASED [None]
  - CELL DEATH [None]
  - CHOLESTASIS [None]
  - GRAFT VERSUS HOST DISEASE [None]
  - HEPATOTOXICITY [None]
